FAERS Safety Report 10386320 (Version 1)
Quarter: 2014Q3

REPORT INFORMATION
  Report Type: Report from Study
  Country: MX (occurrence: MX)
  Receive Date: 20140815
  Receipt Date: 20140815
  Transmission Date: 20150326
  Serious: Yes (Other)
  Sender: FDA-Public Use
  Company Number: MX-ORION CORPORATION ORION PHARMA-ENTC2014-0303

PATIENT
  Age: 79 Year
  Sex: Male

DRUGS (8)
  1. ASPIRIN. [Concomitant]
     Active Substance: ASPIRIN
     Route: 065
     Dates: start: 2011
  2. METAMUCIL [Concomitant]
     Active Substance: PLANTAGO SEED
     Route: 065
  3. MEMANTINE [Concomitant]
     Active Substance: MEMANTINE
     Route: 065
     Dates: start: 2009
  4. TAFIL [Concomitant]
     Active Substance: ALPRAZOLAM
     Route: 065
  5. STALEVO [Suspect]
     Active Substance: CARBIDOPA\ENTACAPONE\LEVODOPA
     Indication: PARKINSON^S DISEASE
     Dosage: STRENGTH: 100/25/200 MG
     Route: 048
  6. EUTIROX [Concomitant]
     Active Substance: LEVOTHYROXINE SODIUM
     Route: 065
     Dates: start: 2009
  7. CORTISONE [Concomitant]
     Active Substance: CORTISONE\HYDROCORTISONE
     Route: 065
     Dates: start: 2011
  8. STALEVO [Suspect]
     Active Substance: CARBIDOPA\ENTACAPONE\LEVODOPA
     Dosage: STRENGTH: 100/25/200 MG
     Route: 048

REACTIONS (9)
  - Head injury [Unknown]
  - Hypersomnia [Not Recovered/Not Resolved]
  - Aggression [Unknown]
  - Nervousness [Unknown]
  - Depression [Not Recovered/Not Resolved]
  - Therapy cessation [Unknown]
  - Fall [Recovered/Resolved]
  - Akinesia [Not Recovered/Not Resolved]
  - Feeling abnormal [Not Recovered/Not Resolved]
